FAERS Safety Report 23819292 (Version 1)
Quarter: 2024Q2

REPORT INFORMATION
  Report Type: Spontaneous
  Country: US (occurrence: US)
  Receive Date: 20240506
  Receipt Date: 20240506
  Transmission Date: 20240716
  Serious: No
  Sender: FDA-Public Use
  Company Number: US-AUROBINDO-AUR-APL-2024-000749

PATIENT
  Age: 88 Year
  Sex: Female
  Weight: 57.152 kg

DRUGS (1)
  1. DEXTROMETHORPHAN HYDROBROMIDE AND GUAIFENESIN [Suspect]
     Active Substance: DEXTROMETHORPHAN HYDROBROMIDE\GUAIFENESIN
     Indication: Drainage
     Dosage: 2 DOSAGE FORM, TWO TIMES A DAY
     Route: 048
     Dates: start: 20231229, end: 20231230

REACTIONS (1)
  - Diarrhoea [Recovered/Resolved]
